FAERS Safety Report 4637534-0 (Version None)
Quarter: 2005Q2

REPORT INFORMATION
  Report Type: 
  Country: None (occurrence: None)
  Receive Date: 20050325
  Receipt Date: 20041208
  Transmission Date: 20051028
  Serious: No
  Sender: FDA-Public Use
  Company Number: USA041285693

PATIENT
  Age: 71 Year
  Sex: Female

DRUGS (7)
  1. FORTEO [Suspect]
     Dates: start: 20040901
  2. OSTEO BI-FLEX [Concomitant]
  3. VITAMIN E [Concomitant]
  4. MULTI-VITAMIN [Concomitant]
  5. CALCIUM CITRATE [Concomitant]
  6. QUESTRAN [Concomitant]
  7. VIT C TAB [Concomitant]

REACTIONS (6)
  - BALANCE DISORDER [None]
  - BLOOD PRESSURE INCREASED [None]
  - COORDINATION ABNORMAL [None]
  - DISCOMFORT [None]
  - HEADACHE [None]
  - LABYRINTHITIS [None]
